FAERS Safety Report 4357048-5 (Version None)
Quarter: 2004Q2

REPORT INFORMATION
  Report Type: 
  Country: None (occurrence: None)
  Receive Date: 20040512
  Receipt Date: 20040430
  Transmission Date: 20050107
  Serious: Yes (Life-Threatening)
  Sender: FDA-Public Use
  Company Number: FI-GLAXOSMITHKLINE-B0331679A

PATIENT
  Age: 39 Year
  Sex: Male

DRUGS (1)
  1. ZYBAN [Suspect]
     Dosage: 150MG PER DAY
     Route: 048
     Dates: start: 20040408, end: 20040420

REACTIONS (3)
  - CONTUSION [None]
  - LOSS OF CONSCIOUSNESS [None]
  - SKIN LACERATION [None]
